FAERS Safety Report 7614504-1 (Version None)
Quarter: 2011Q3

REPORT INFORMATION
  Report Type: 
  Country: None (occurrence: None)
  Receive Date: 20110708
  Receipt Date: 20110624
  Transmission Date: 20111222
  Serious: No
  Sender: FDA-Public Use
  Company Number: SPI201100181

PATIENT
  Sex: Female

DRUGS (1)
  1. AMITIZA [Suspect]
     Indication: CONSTIPATION
     Dosage: 8 MCG, BID, ORAL, 24 MCG, QD, ORAL
     Route: 050

REACTIONS (4)
  - PALPITATIONS [None]
  - HEADACHE [None]
  - DRUG INEFFECTIVE [None]
  - DYSPNOEA [None]
